FAERS Safety Report 4794425-2 (Version None)
Quarter: 2005Q4

REPORT INFORMATION
  Report Type: 
  Country: None (occurrence: None)
  Receive Date: 20051011
  Receipt Date: 20050929
  Transmission Date: 20060501
  Serious: Yes (Life-Threatening)
  Sender: FDA-Public Use
  Company Number: FR-ROCHE-419496

PATIENT
  Age: 71 Year
  Sex: Female

DRUGS (6)
  1. VESANOID [Suspect]
     Indication: ACUTE PROMYELOCYTIC LEUKAEMIA
     Dosage: INDICATION = LAM 3 (LEUCEMIE AIGUE MYELOBLASTIQUE)
     Route: 048
     Dates: start: 20050426, end: 20050511
  2. TAZOCILLINE [Concomitant]
     Dosage: FORMULATION = LYOPHILISED STRENGTH REPORTED AS 4G/500MG
     Route: 042
     Dates: start: 20050520, end: 20050601
  3. UNSPECIFIED DRUG [Concomitant]
     Dosage: DRUG REPORTED AS NORADRENALINE
     Route: 042
     Dates: start: 20050520, end: 20050523
  4. VANCOMYCIN [Concomitant]
     Route: 042
     Dates: start: 20050520, end: 20050523
  5. GENTAMICIN SULFATE [Concomitant]
     Route: 042
     Dates: start: 20050520
  6. HEPARINE CALCIUM [Concomitant]
     Dosage: DRUG REPORTED AS 'HEPARINE CHOAY'
     Route: 042
     Dates: start: 20050520, end: 20050612

REACTIONS (8)
  - CUTANEOUS VASCULITIS [None]
  - LUNG DISORDER [None]
  - NECROSIS ISCHAEMIC [None]
  - OEDEMA [None]
  - PLEURAL EFFUSION [None]
  - PNEUMONIA KLEBSIELLA [None]
  - PSEUDOMONAS INFECTION [None]
  - SEPTIC SHOCK [None]
